FAERS Safety Report 8459438-8 (Version None)
Quarter: 2012Q2

REPORT INFORMATION
  Report Type: 
  Country: None (occurrence: None)
  Receive Date: 20120622
  Receipt Date: 20120618
  Transmission Date: 20120825
  Serious: Yes (Hospitalization, Other)
  Sender: FDA-Public Use
  Company Number: US-PFIZER INC-2012115760

PATIENT
  Sex: Female
  Weight: 99.773 kg

DRUGS (12)
  1. LYRICA [Suspect]
     Dosage: 150 MG, 2X/DAY
     Route: 048
     Dates: start: 20120401
  2. LORATADINE [Concomitant]
     Dosage: UNK
  3. SIMVASTATIN [Concomitant]
     Dosage: UNK
  4. SULINDAC [Concomitant]
     Dosage: UNK
  5. LEVOTHYROXINE [Concomitant]
     Dosage: UNK
  6. LYRICA [Suspect]
     Indication: FIBROMYALGIA
     Dosage: 150 MG, 2X/DAY
     Route: 048
     Dates: end: 20120301
  7. VENLAFAXINE [Concomitant]
     Dosage: UNK
  8. FAMOTIDINE [Concomitant]
     Dosage: UNK
  9. METFORMIN [Concomitant]
     Dosage: UNK
  10. SPIRONOLACTONE [Concomitant]
     Dosage: UNK
  11. METOPROLOL [Concomitant]
     Dosage: UNK
  12. ORPHENADRINE [Concomitant]
     Dosage: UNK

REACTIONS (8)
  - DIZZINESS [None]
  - EAR INFECTION [None]
  - MALAISE [None]
  - CONFUSIONAL STATE [None]
  - AMNESIA [None]
  - DEHYDRATION [None]
  - DIABETES MELLITUS [None]
  - SINUSITIS [None]
